FAERS Safety Report 7691330-9 (Version None)
Quarter: 2011Q3

REPORT INFORMATION
  Report Type: 
  Country: None (occurrence: None)
  Receive Date: 20110818
  Receipt Date: 20110808
  Transmission Date: 20111222
  Serious: Yes (Other)
  Sender: FDA-Public Use
  Company Number: US-NOVOPROD-333260

PATIENT
  Sex: Female
  Weight: 131.52 kg

DRUGS (2)
  1. LEVEMIR [Concomitant]
     Indication: TYPE 2 DIABETES MELLITUS
     Dosage: UNK
     Route: 058
  2. NOVOLOG [Suspect]
     Indication: TYPE 2 DIABETES MELLITUS
     Dosage: 17 U, TID
     Route: 058
     Dates: end: 20110801

REACTIONS (2)
  - THROAT TIGHTNESS [None]
  - URTICARIA [None]
